FAERS Safety Report 19647500 (Version 1)
Quarter: 2021Q3

REPORT INFORMATION
  Report Type: Spontaneous
  Country: IT (occurrence: IT)
  Receive Date: 20210802
  Receipt Date: 20210802
  Transmission Date: 20211014
  Serious: Yes (Other)
  Sender: FDA-Public Use
  Company Number: NVSC2021IT168266

PATIENT
  Age: 16 Year
  Sex: Female

DRUGS (5)
  1. LESTRONETTE [Concomitant]
     Active Substance: ETHINYL ESTRADIOL\LEVONORGESTREL
     Indication: PRODUCT USED FOR UNKNOWN INDICATION
     Dosage: 0.02 MG (0.1 MG+0.02 MG)
     Route: 065
  2. SALINE [Suspect]
     Active Substance: SODIUM CHLORIDE
     Indication: PRODUCT USED FOR UNKNOWN INDICATION
     Dosage: UNK,1 TOTAL
     Route: 065
  3. ARTROSILENE [Suspect]
     Active Substance: KETOPROFEN
     Indication: BACK PAIN
  4. ARTROSILENE [Suspect]
     Active Substance: KETOPROFEN
     Indication: ARTHRALGIA
     Dosage: 1 DF,1 TOTAL
     Route: 065
     Dates: start: 202103
  5. PANTORC [Suspect]
     Active Substance: PANTOPRAZOLE SODIUM
     Indication: PRODUCT USED FOR UNKNOWN INDICATION
     Dosage: 40 MG,1 TOTAL
     Route: 065

REACTIONS (5)
  - Off label use [Not Recovered/Not Resolved]
  - Diplegia [Not Recovered/Not Resolved]
  - Clonic convulsion [Recovered/Resolved]
  - Contraindicated product administered [Not Recovered/Not Resolved]
  - Loss of control of legs [Not Recovered/Not Resolved]

NARRATIVE: CASE EVENT DATE: 202103
